FAERS Safety Report 4491667-0 (Version None)
Quarter: 2004Q4

REPORT INFORMATION
  Report Type: 
  Country: None (occurrence: None)
  Receive Date: 20041103
  Receipt Date: 20041028
  Transmission Date: 20050328
  Serious: Yes (Disabling)
  Sender: FDA-Public Use
  Company Number: FR-BRISTOL-MYERS SQUIBB COMPANY-12748992

PATIENT
  Age: 60 Year
  Sex: Male
  Weight: 79 kg

DRUGS (5)
  1. PRAVASTATIN [Suspect]
     Route: 048
     Dates: start: 20040123
  2. MODOPAR [Suspect]
     Route: 048
     Dates: start: 20040615
  3. VIRAMUNE [Suspect]
     Route: 048
     Dates: start: 19990101
  4. COMBIVIR [Suspect]
     Route: 048
     Dates: start: 19990101
  5. ENALAPRIL MALEATE AND HYDROCHLOROTHIAZIDE [Suspect]
     Route: 048
     Dates: start: 20040123

REACTIONS (1)
  - OSTEONECROSIS [None]
